FAERS Safety Report 8790498 (Version 1)
Quarter: 2012Q4

REPORT INFORMATION
  Report Type: Spontaneous
  Country: US (occurrence: None)
  Receive Date: 20120911
  Receipt Date: 20120911
  Transmission Date: 20130627
  Serious: Yes (Other)
  Sender: FDA-Public Use
  Company Number: None

PATIENT
  Age: 81 Year
  Sex: Female

DRUGS (1)
  1. DORZOLAMIDE HYDROCHLORIDE\TIMOLOL MALEATE [Suspect]
     Indication: GLAUCOMA
     Dosage: 1 drop in each eye twice daily ophthalmic
     Route: 047
     Dates: start: 20120818, end: 20120906

REACTIONS (2)
  - Instillation site pain [None]
  - Product substitution issue [None]
